FAERS Safety Report 4388548-X (Version None)
Quarter: 2004Q2

REPORT INFORMATION
  Report Type: 
  Country: None (occurrence: None)
  Receive Date: 20040621
  Receipt Date: 20040603
  Transmission Date: 20050107
  Serious: Yes (Hospitalization)
  Sender: FDA-Public Use
  Company Number: THYM-10156

PATIENT
  Age: 52 Year
  Sex: Male
  Weight: 106.8 kg

DRUGS (10)
  1. THYMOGLOBULIN [Suspect]
     Indication: RENAL TRANSPLANT
     Dosage: 125 MG QD IV
     Route: 042
     Dates: start: 20040430, end: 20040506
  2. TYLENOL [Concomitant]
  3. BENADRYL [Concomitant]
  4. STEROIDS (UNSPECIFIED) [Concomitant]
  5. GANCICLOVIR [Concomitant]
  6. CELLCEPT [Concomitant]
  7. BACTRIM [Concomitant]
  8. ANCEF [Concomitant]
  9. STEROIDS (UNSPECIFIED) [Concomitant]
  10. FERRICET [Concomitant]

REACTIONS (4)
  - BLOOD CREATININE INCREASED [None]
  - DIALYSIS [None]
  - GRAFT DYSFUNCTION [None]
  - THROMBOTIC MICROANGIOPATHY [None]
